FAERS Safety Report 7230261-5 (Version None)
Quarter: 2011Q1

REPORT INFORMATION
  Report Type: 
  Country: None (occurrence: None)
  Receive Date: 20110118
  Receipt Date: 20110111
  Transmission Date: 20110831
  Serious: No
  Sender: FDA-Public Use
  Company Number: US-PFIZER INC-2011007329

PATIENT
  Sex: Female
  Weight: 56.689 kg

DRUGS (4)
  1. XANAX [Concomitant]
     Dosage: 0.25 MG, DAILY
     Dates: start: 20050101
  2. SIMVASTATIN [Concomitant]
     Indication: BLOOD CHOLESTEROL INCREASED
     Dosage: 20 MG, UNK
     Dates: start: 20050101
  3. VERAMYST [Concomitant]
     Dosage: UNK
     Dates: start: 20050101
  4. CHANTIX [Suspect]
     Indication: SMOKING CESSATION THERAPY
     Dosage: 0.5 MG, DAILY
     Route: 048
     Dates: start: 20110108

REACTIONS (3)
  - FEELING ABNORMAL [None]
  - RASH ERYTHEMATOUS [None]
  - URTICARIA [None]
